FAERS Safety Report 6960936-4 (Version None)
Quarter: 2010Q3

REPORT INFORMATION
  Report Type: 
  Country: None (occurrence: None)
  Receive Date: 20100901
  Receipt Date: 20100820
  Transmission Date: 20110219
  Serious: Yes (Other)
  Sender: FDA-Public Use
  Company Number: TW-WATSON-2010-11389

PATIENT
  Age: 65 Year
  Sex: Male

DRUGS (1)
  1. NAPROXEN SODIUM (WATSON LABORATORIES) [Suspect]
     Indication: CANCER PAIN
     Dosage: UNK

REACTIONS (3)
  - PSEUDOLYMPHOMA [None]
  - PYREXIA [None]
  - RASH GENERALISED [None]
